FAERS Safety Report 9680754 (Version 4)
Quarter: 2014Q1

REPORT INFORMATION
  Report Type: Report from Study
  Country: IN (occurrence: IN)
  Receive Date: 20131111
  Receipt Date: 20140219
  Transmission Date: 20141002
  Serious: Yes (Other)
  Sender: FDA-Public Use
  Company Number: PHHY2013IN127088

PATIENT
  Age: 18 Year
  Sex: Male
  Weight: 35.2 kg

DRUGS (16)
  1. SIMULECT [Suspect]
     Indication: RENAL TRANSPLANT
     Dosage: UNK UKN, UNK
     Dates: start: 20110719
  2. MYCOPHENOLATE MOFETIL [Suspect]
     Indication: RENAL TRANSPLANT
     Dosage: 500 MG, TID
     Dates: start: 20110719
  3. MYCOPHENOLATE MOFETIL [Suspect]
     Dosage: 700 MG, (500 MG BID AND 200 MG ONCE DAILY)
     Dates: start: 20110804
  4. MYCOPHENOLATE MOFETIL [Suspect]
     Dosage: 750 MG, (500 MG BID AND 250 MG ONCE DAILY)
     Dates: start: 20110822
  5. MYCOPHENOLATE MOFETIL [Suspect]
     Dosage: 750 MG, (500 MG BID AND 250 MG ONCE DAILY)
     Dates: start: 20111021
  6. MYCOPHENOLATE MOFETIL [Suspect]
     Dosage: 750 MG, (500 MG BID AND 250 MG ONCE DAILY)
     Dates: start: 20120121
  7. MYCOPHENOLATE MOFETIL [Suspect]
     Dosage: 750 MG, (500 MG BID AND 250 MG ONCE DAILY)
     Dates: start: 20120721
  8. TACROLIMUS [Suspect]
     Indication: RENAL TRANSPLANT
     Dosage: 0.1 MG/KG
     Dates: start: 20110719
  9. TACROLIMUS [Suspect]
     Dosage: 0.1 MG/KG, UNK
     Dates: start: 20110804
  10. TACROLIMUS [Suspect]
     Dosage: 0.1 MG/KG, UNK
     Dates: start: 20110822
  11. TACROLIMUS [Suspect]
     Dosage: 0.1 MG/KG, UNK
     Dates: start: 20111021
  12. TACROLIMUS [Suspect]
     Dosage: 0.09 MG/KG, UNK
     Dates: start: 20120121
  13. TACROLIMUS [Suspect]
     Dosage: 0.08 MG/KG, UNK
     Dates: start: 20120721
  14. ANTIBIOTICS [Concomitant]
  15. COTRIMOXAZOLE [Concomitant]
  16. CORTICOSTEROIDS [Concomitant]
     Route: 048

REACTIONS (4)
  - Erosive duodenitis [Recovered/Resolved]
  - Hepatitis B [Recovered/Resolved]
  - Urine output increased [Recovered/Resolved]
  - Mastitis [Recovered/Resolved]
